FAERS Safety Report 7520296-7 (Version None)
Quarter: 2011Q2

REPORT INFORMATION
  Report Type: 
  Country: None (occurrence: None)
  Receive Date: 20110602
  Receipt Date: 20110526
  Transmission Date: 20111010
  Serious: Yes (Hospitalization)
  Sender: FDA-Public Use
  Company Number: US-US-EMD SERONO, INC.-7039114

PATIENT
  Sex: Male

DRUGS (5)
  1. LOVAZA [Concomitant]
  2. EXFORGE [Concomitant]
     Indication: HYPERTENSION
  3. OXCARBAZEPINE [Concomitant]
     Indication: CONVULSION
  4. SIMVASTATIN [Concomitant]
     Indication: HYPERLIPIDAEMIA
  5. REBIF [Suspect]
     Indication: MULTIPLE SCLEROSIS
     Route: 058
     Dates: start: 20100915

REACTIONS (12)
  - CONSTIPATION [None]
  - MUSCULAR WEAKNESS [None]
  - MUSCLE TIGHTNESS [None]
  - ABDOMINAL PAIN [None]
  - FATIGUE [None]
  - MYALGIA [None]
  - HYPOAESTHESIA [None]
  - RHINORRHOEA [None]
  - FEELING ABNORMAL [None]
  - DYSPHONIA [None]
  - INSOMNIA [None]
  - INFLUENZA [None]
